FAERS Safety Report 23369981 (Version 1)
Quarter: 2024Q1

REPORT INFORMATION
  Report Type: Spontaneous
  Country: US (occurrence: None)
  Receive Date: 20240104
  Receipt Date: 20240104
  Transmission Date: 20240410
  Serious: Yes (Other)
  Sender: FDA-Public Use
  Company Number: None

PATIENT
  Age: 18 Year
  Sex: Female
  Weight: 82.1 kg

DRUGS (3)
  1. INFED [Suspect]
     Active Substance: IRON DEXTRAN
     Indication: Iron deficiency anaemia
     Dosage: OTHER FREQUENCY : ONCE;?
     Route: 042
     Dates: start: 20240102, end: 20240102
  2. Bupropion 100 mg PO BID [Concomitant]
  3. Escitalopram 10 mg PO daily [Concomitant]

REACTIONS (7)
  - Dyspnoea [None]
  - Flushing [None]
  - Erythema [None]
  - Dizziness [None]
  - Pruritus [None]
  - Throat irritation [None]
  - Infusion related reaction [None]

NARRATIVE: CASE EVENT DATE: 20240102
